FAERS Safety Report 25100712 (Version 1)
Quarter: 2025Q1

REPORT INFORMATION
  Report Type: Report from Study
  Country: US (occurrence: US)
  Receive Date: 20250320
  Receipt Date: 20250320
  Transmission Date: 20250408
  Serious: Yes (Other)
  Sender: PFIZER
  Company Number: US-PFIZER INC-PV202500032561

PATIENT
  Age: 15 Year
  Sex: Female

DRUGS (3)
  1. SPIRONOLACTONE [Suspect]
     Active Substance: SPIRONOLACTONE
     Dates: start: 20240208, end: 20250217
  2. KEVEYIS [Suspect]
     Active Substance: DICHLORPHENAMIDE
     Dates: start: 20240208
  3. KEVEYIS [Suspect]
     Active Substance: DICHLORPHENAMIDE
     Dosage: 50 MG, 1X/DAY
     Route: 048
     Dates: start: 20240313, end: 2025

REACTIONS (4)
  - Neuropathy peripheral [Not Recovered/Not Resolved]
  - Brain fog [Not Recovered/Not Resolved]
  - Electric shock sensation [Not Recovered/Not Resolved]
  - Dysgeusia [Recovered/Resolved]
